FAERS Safety Report 23881580 (Version 1)
Quarter: 2024Q2

REPORT INFORMATION
  Report Type: Spontaneous
  Country: US (occurrence: US)
  Receive Date: 20240521
  Receipt Date: 20240521
  Transmission Date: 20240715
  Serious: No
  Sender: FDA-Public Use
  Company Number: US-SA-SAC20210901000773

PATIENT
  Age: 48 Year
  Sex: Female

DRUGS (4)
  1. DUPIXENT [Suspect]
     Active Substance: DUPILUMAB
     Indication: Nasal polyps
     Dosage: 300MG, QOW
     Route: 058
     Dates: start: 201911
  2. DUPIXENT [Suspect]
     Active Substance: DUPILUMAB
     Indication: Asthma
  3. DUPIXENT [Suspect]
     Active Substance: DUPILUMAB
     Indication: Ankylosing spondylitis
  4. CIMZIA [Concomitant]
     Active Substance: CERTOLIZUMAB PEGOL

REACTIONS (3)
  - Urticaria [Unknown]
  - Hypersensitivity [Unknown]
  - Product use in unapproved indication [Unknown]

NARRATIVE: CASE EVENT DATE: 20191101
